FAERS Safety Report 8203934-5 (Version None)
Quarter: 2012Q1

REPORT INFORMATION
  Report Type: 
  Country: None (occurrence: None)
  Receive Date: 20120313
  Receipt Date: 20120305
  Transmission Date: 20120608
  Serious: Yes (Other)
  Sender: FDA-Public Use
  Company Number: US-US-EMD SERONO, INC.-7019215

PATIENT
  Sex: Male
  Weight: 105 kg

DRUGS (8)
  1. LANTUS [Concomitant]
     Dosage: 45 UNITS IN THE MORNING
     Dates: start: 20100101
  2. NOVOLOG [Concomitant]
     Indication: TYPE 1 DIABETES MELLITUS
  3. REBIF [Suspect]
     Indication: MULTIPLE SCLEROSIS
     Route: 058
     Dates: start: 20100601
  4. LANTUS [Concomitant]
     Indication: TYPE 1 DIABETES MELLITUS
     Dosage: 35 UNITS IN THE MORNING
     Dates: end: 20100101
  5. LANTUS [Concomitant]
  6. IBUPROFEN [Concomitant]
     Indication: PREMEDICATION
  7. INSULIN [Concomitant]
     Indication: TYPE 1 DIABETES MELLITUS
  8. METFORMIN HYDROCHLORIDE [Concomitant]
     Indication: TYPE 1 DIABETES MELLITUS

REACTIONS (3)
  - INFLUENZA LIKE ILLNESS [None]
  - ORTHOPEDIC PROCEDURE [None]
  - BLOOD GLUCOSE INCREASED [None]
